FAERS Safety Report 7160565-6 (Version None)
Quarter: 2010Q4

REPORT INFORMATION
  Report Type: 
  Country: None (occurrence: None)
  Receive Date: 20101214
  Receipt Date: 20101209
  Transmission Date: 20110411
  Serious: Yes (Death)
  Sender: FDA-Public Use
  Company Number: US-PFIZER INC-2010097795

PATIENT
  Sex: Male

DRUGS (16)
  1. REVATIO [Suspect]
     Indication: PULMONARY HYPERTENSION
     Dosage: 20 MG, 2X/DAY
     Route: 048
  2. COMBIVENT [Concomitant]
     Dosage: 2 PUFFS EVERY 6 HOURS
  3. ZYLOPRIM [Concomitant]
     Dosage: 100 MG, 1X/DAY
  4. AMIODARONE HYDROCHLORIDE [Concomitant]
     Dosage: 200 MG, 1X/DAY
  5. CAPOTEN [Concomitant]
     Dosage: 25 MG EVERY 8 HOURS
  6. CARVEDILOL [Concomitant]
     Dosage: 12.5 MG, 2X/DAY
  7. COLCHICINE [Concomitant]
     Dosage: 0.6 MG, 2X/DAY
  8. FLOVENT [Concomitant]
     Dosage: ONE PUFF TWICE A DAY
  9. PROBENECID [Concomitant]
     Dosage: 500 MG, 1X/DAY
  10. MYLANTA [Concomitant]
     Dosage: UNK
  11. VICODIN [Concomitant]
     Indication: PAIN
     Dosage: UNK
  12. IMODIUM [Concomitant]
     Dosage: UNK
  13. ZANTAC [Concomitant]
     Dosage: 150 MG, 2X/DAY
  14. COUMADIN [Concomitant]
     Dosage: 2.5 MG, 1X/DAY
  15. LASIX [Concomitant]
     Dosage: 40 MG, 2X/DAY
  16. DIGOXIN [Concomitant]
     Dosage: 125 UG, ALTERNATE DAY

REACTIONS (17)
  - ACUTE PULMONARY OEDEMA [None]
  - ANAEMIA [None]
  - ATRIAL FIBRILLATION [None]
  - CARDIAC FAILURE CONGESTIVE [None]
  - CARDIOMYOPATHY [None]
  - CHRONIC OBSTRUCTIVE PULMONARY DISEASE [None]
  - CLOSTRIDIUM DIFFICILE COLITIS [None]
  - ENTEROCOCCAL INFECTION [None]
  - GASTROINTESTINAL HAEMORRHAGE [None]
  - GOUTY ARTHRITIS [None]
  - HYPOXIA [None]
  - KLEBSIELLA INFECTION [None]
  - OEDEMA PERIPHERAL [None]
  - PLEURAL EFFUSION [None]
  - PSEUDOMONAS INFECTION [None]
  - PULMONARY HYPERTENSION [None]
  - RENAL FAILURE [None]
